FAERS Safety Report 5471414-6 (Version None)
Quarter: 2007Q3

REPORT INFORMATION
  Report Type: 
  Country: None (occurrence: None)
  Receive Date: 20070928
  Receipt Date: 20061006
  Transmission Date: 20080115
  Serious: No
  Sender: FDA-Public Use
  Company Number: US-BRISTOL-MYERS SQUIBB COMPANY-13533823

PATIENT
  Age: 68 Year
  Sex: Female

DRUGS (6)
  1. DEFINITY [Suspect]
     Indication: STRESS ECHOCARDIOGRAM
  2. NITROGLYCERIN [Concomitant]
     Route: 060
  3. ATENOLOL [Concomitant]
  4. PROTONIX [Concomitant]
  5. GLYBURIDE [Concomitant]
  6. ALTACE [Concomitant]

REACTIONS (1)
  - MUSCLE SPASMS [None]
